FAERS Safety Report 11306122 (Version 2)
Quarter: 2015Q3

REPORT INFORMATION
  Report Type: Spontaneous
  Country: CH (occurrence: CH)
  Receive Date: 20150723
  Receipt Date: 20150724
  Transmission Date: 20151125
  Serious: Yes (Hospitalization, Other)
  Sender: FDA-Public Use
  Company Number: CH-GILEAD-2015-0163707

PATIENT
  Sex: Female

DRUGS (1)
  1. ZYDELIG [Suspect]
     Active Substance: IDELALISIB
     Indication: B-CELL LYMPHOMA
     Dosage: 150 MG, UNK
     Route: 048
     Dates: start: 20150130, end: 20150429

REACTIONS (2)
  - Gastroenteritis salmonella [Recovering/Resolving]
  - Giardiasis [Not Recovered/Not Resolved]

NARRATIVE: CASE EVENT DATE: 20150429
